FAERS Safety Report 10424107 (Version 1)
Quarter: 2014Q3

REPORT INFORMATION
  Report Type: Spontaneous
  Country: US (occurrence: US)
  Receive Date: 20140902
  Receipt Date: 20140902
  Transmission Date: 20150326
  Serious: Yes (Other)
  Sender: FDA-Public Use
  Company Number: US-SA-2014SA116481

PATIENT
  Age: 51 Year
  Sex: Male

DRUGS (4)
  1. LEVEMIR [Concomitant]
     Active Substance: INSULIN DETEMIR
  2. LANTUS SOLOSTAR [Suspect]
     Active Substance: INSULIN GLARGINE
     Indication: TYPE 2 DIABETES MELLITUS
     Dosage: DOSE:30 UNIT(S)
     Route: 065
  3. NOVOLOG [Concomitant]
     Active Substance: INSULIN ASPART
  4. SOLOSTAR [Concomitant]
     Active Substance: DEVICE
     Indication: TYPE 2 DIABETES MELLITUS

REACTIONS (11)
  - Bladder dysfunction [Unknown]
  - Renal impairment [Unknown]
  - Tendon disorder [Unknown]
  - Hepatic function abnormal [Unknown]
  - Skin abrasion [Not Recovered/Not Resolved]
  - Toe amputation [Unknown]
  - Blood glucose increased [Unknown]
  - Drug dose omission [Unknown]
  - Surgery [Unknown]
  - Incorrect dose administered [Unknown]
  - Skin ulcer [Unknown]

NARRATIVE: CASE EVENT DATE: 2002
